FAERS Safety Report 8462051 (Version 2)
Quarter: 2013Q1

REPORT INFORMATION
  Report Type: Spontaneous
  Country: DE (occurrence: None)
  Receive Date: 20120308
  Receipt Date: 20130125
  Transmission Date: 20140127
  Serious: Yes (Other)
  Sender: FDA-Public Use
  Company Number: DSA_55202_2012

PATIENT
  Age: 78 Year
  Sex: Female

DRUGS (2)
  1. ENALAPRIL MALEATE [Suspect]
     Route: 048
     Dates: start: 2003, end: 200807
  2. FENTANYL [Suspect]
     Dosage: FREQUENCY UNKNOWN TOPICAL
     Route: 062
     Dates: start: 200409, end: 200807

REACTIONS (1)
  - DEMENTIA [None]
